FAERS Safety Report 7579846-7 (Version None)
Quarter: 2011Q2

REPORT INFORMATION
  Report Type: 
  Country: None (occurrence: None)
  Receive Date: 20110629
  Receipt Date: 20110621
  Transmission Date: 20111010
  Serious: Yes (Hospitalization)
  Sender: FDA-Public Use
  Company Number: JP-ABBOTT-11P-087-0720626-00

PATIENT
  Sex: Female
  Weight: 42.8 kg

DRUGS (6)
  1. CLOSTRIDIUM BUTYRICUM COMBINED DRUG [Concomitant]
     Indication: CROHN'S DISEASE
     Dosage: DAILY DOSE: 2 TABLETS
     Route: 048
  2. ADRENAL HORMONE PREPARATIONS [Concomitant]
     Indication: CROHN'S DISEASE
  3. HUMIRA [Suspect]
     Indication: CROHN'S DISEASE
     Route: 058
     Dates: start: 20101115, end: 20101115
  4. MESALAMINE [Concomitant]
     Indication: CROHN'S DISEASE
     Route: 048
     Dates: start: 20040810
  5. HUMIRA [Suspect]
     Dates: start: 20101214, end: 20110329
  6. HUMIRA [Suspect]
     Dates: start: 20101129, end: 20101129

REACTIONS (3)
  - PYREXIA [None]
  - HYPOPHAGIA [None]
  - STOMATITIS [None]
